FAERS Safety Report 5070306-4 (Version None)
Quarter: 2006Q3

REPORT INFORMATION
  Report Type: 
  Country: None (occurrence: None)
  Receive Date: 20060802
  Receipt Date: 20060717
  Transmission Date: 20061208
  Serious: No
  Sender: FDA-Public Use
  Company Number: DEU-2006-0002367

PATIENT
  Age: 37 Year
  Sex: Male

DRUGS (5)
  1. MORPHINE SULFATE [Suspect]
     Indication: PAIN
     Dosage: SEE IMAGE
     Route: 037
     Dates: end: 19971104
  2. MORPHINE SULFATE [Suspect]
     Indication: PAIN
     Dosage: SEE IMAGE
     Route: 037
     Dates: start: 19920101
  3. HYDROMORPHONE HYDROCHLORIDE [Suspect]
     Indication: PAIN
     Dosage: 1 MG DAILY, INTRATHECAL
     Route: 037
     Dates: start: 19920101
  4. HYDROMORPHONE HYDROCHLORIDE [Suspect]
     Indication: PAIN
     Dosage: 1 MG DAILY, INTRATHECAL
     Route: 037
     Dates: start: 19971105
  5. BACLOFEN [Concomitant]

REACTIONS (4)
  - HYPOAESTHESIA [None]
  - INJECTION SITE MASS [None]
  - MUSCLE SPASMS [None]
  - SPINAL CORD COMPRESSION [None]
